FAERS Safety Report 12387280 (Version 1)
Quarter: 2016Q2

REPORT INFORMATION
  Report Type: Spontaneous
  Country: US (occurrence: US)
  Receive Date: 20160519
  Receipt Date: 20160519
  Transmission Date: 20160815
  Serious: Yes (Other)
  Sender: FDA-Public Use
  Company Number: US-BAUSCH-BL-2016-011596

PATIENT
  Age: 75 Year
  Sex: Female
  Weight: 72.64 kg

DRUGS (4)
  1. SOOTHE XP [Suspect]
     Active Substance: LIGHT MINERAL OIL\MINERAL OIL
     Route: 047
     Dates: start: 201602, end: 20160308
  2. SOOTHE XP [Suspect]
     Active Substance: LIGHT MINERAL OIL\MINERAL OIL
     Indication: DRY EYE
     Route: 047
     Dates: start: 201511
  3. SOOTHE HYDRATION [Concomitant]
     Active Substance: POVIDONE
     Indication: DRY EYE
     Route: 065
     Dates: end: 201511
  4. SOOTHE HYDRATION [Concomitant]
     Active Substance: POVIDONE
     Route: 065
     Dates: start: 20160308

REACTIONS (2)
  - Expired product administered [Recovered/Resolved]
  - Punctate keratitis [Recovered/Resolved]

NARRATIVE: CASE EVENT DATE: 201511
